FAERS Safety Report 5486107-9 (Version None)
Quarter: 2007Q4

REPORT INFORMATION
  Report Type: 
  Country: None (occurrence: None)
  Receive Date: 20071015
  Receipt Date: 20071003
  Transmission Date: 20080405
  Serious: Yes (Other)
  Sender: FDA-Public Use
  Company Number: US-PFIZER INC-2007083332

PATIENT
  Sex: Female
  Weight: 50.8 kg

DRUGS (3)
  1. DETROL LA [Suspect]
     Indication: POLLAKIURIA
     Route: 048
  2. MACRODANTIN [Concomitant]
  3. ANTIBIOTICS [Concomitant]

REACTIONS (2)
  - DEHYDRATION [None]
  - DYSURIA [None]
